FAERS Safety Report 4513242-1 (Version None)
Quarter: 2004Q4

REPORT INFORMATION
  Report Type: 
  Country: None (occurrence: None)
  Receive Date: 20041130
  Receipt Date: 20030722
  Transmission Date: 20050328
  Serious: Yes (Other)
  Sender: FDA-Public Use
  Company Number: GB-ROCHE-342739

PATIENT
  Age: 79 Year
  Sex: Male
  Weight: 77 kg

DRUGS (12)
  1. DACLIZUMAB [Suspect]
     Route: 042
     Dates: start: 20030423, end: 20030423
  2. DACLIZUMAB [Suspect]
     Dosage: FOR 4 DOSES.
     Route: 042
     Dates: end: 20030617
  3. MYCOPHENOLATE MOFETIL [Suspect]
     Route: 048
     Dates: start: 20030423
  4. CYCLOSPORINE [Suspect]
     Route: 048
     Dates: start: 20030423
  5. CYCLOSPORINE [Suspect]
     Route: 048
  6. PREDNISOLONE [Suspect]
     Route: 048
     Dates: start: 20030423
  7. HYDROCORTISONE [Suspect]
     Route: 042
     Dates: start: 20030426, end: 20030429
  8. ASPIRIN [Concomitant]
     Route: 048
     Dates: start: 20030423
  9. METOPROLOL [Concomitant]
     Route: 048
     Dates: start: 20030426
  10. NIFEDIPINE [Concomitant]
     Route: 048
  11. METOCLOPRAMIDE [Concomitant]
     Route: 042
     Dates: start: 20030427, end: 20030429
  12. THYROXINE [Concomitant]
     Route: 048
     Dates: start: 20030429

REACTIONS (14)
  - ACIDOSIS [None]
  - ANGINA PECTORIS [None]
  - ARTERIAL HAEMORRHAGE [None]
  - CHEST DISCOMFORT [None]
  - COLLAPSE OF LUNG [None]
  - CONTUSION [None]
  - FATIGUE [None]
  - HAEMATURIA [None]
  - HAEMOGLOBIN ABNORMAL [None]
  - LUNG CONSOLIDATION [None]
  - PARAESTHESIA [None]
  - PERIRENAL HAEMATOMA [None]
  - PURPURA [None]
  - SOMNOLENCE [None]
